FAERS Safety Report 20200692 (Version 1)
Quarter: 2021Q4

REPORT INFORMATION
  Report Type: Report from Study
  Country: US (occurrence: US)
  Receive Date: 20211217
  Receipt Date: 20211217
  Transmission Date: 20220303
  Serious: No
  Sender: FDA-Public Use
  Company Number: US-Ipsen Biopharmaceuticals, Inc.-2021-31600

PATIENT
  Age: 50 Year
  Sex: Male

DRUGS (2)
  1. SOMATULINE DEPOT [Suspect]
     Active Substance: LANREOTIDE ACETATE
     Indication: Neuroendocrine tumour
     Dosage: DOSE: 120ML/0.5ML
     Route: 058
     Dates: start: 202012
  2. SOMATULINE DEPOT [Suspect]
     Active Substance: LANREOTIDE ACETATE
     Indication: Pancreatic neuroendocrine tumour

REACTIONS (2)
  - Laboratory test abnormal [Recovered/Resolved with Sequelae]
  - Incorrect product administration duration [Unknown]

NARRATIVE: CASE EVENT DATE: 20211001
